FAERS Safety Report 16285459 (Version 2)
Quarter: 2019Q2

REPORT INFORMATION
  Report Type: Spontaneous
  Country: US (occurrence: US)
  Receive Date: 20190508
  Receipt Date: 20190521
  Transmission Date: 20190711
  Serious: Yes (Life-Threatening, Hospitalization, Other)
  Sender: FDA-Public Use
  Company Number: US-DRREDDYS-USA/USA/19/0110049

PATIENT
  Age: 2 Month
  Sex: Male
  Weight: 4.8 kg

DRUGS (3)
  1. SEVOFLURANE. [Concomitant]
     Active Substance: SEVOFLURANE
  2. PROPOFOL INJECTABLE EMULSION [Suspect]
     Active Substance: PROPOFOL
     Indication: INDUCTION OF ANAESTHESIA
     Route: 042
  3. SEVOFLURANE. [Concomitant]
     Active Substance: SEVOFLURANE
     Indication: INDUCTION OF ANAESTHESIA

REACTIONS (7)
  - Electrocardiogram ST segment elevation [Not Recovered/Not Resolved]
  - Brain injury [Unknown]
  - Hypotension [Not Recovered/Not Resolved]
  - Electrocardiogram QRS complex prolonged [Not Recovered/Not Resolved]
  - Tachycardia [Not Recovered/Not Resolved]
  - Cardiac arrest [Unknown]
  - Seizure [Unknown]
